FAERS Safety Report 23318347 (Version 2)
Quarter: 2023Q4

REPORT INFORMATION
  Report Type: Spontaneous
  Country: US (occurrence: US)
  Receive Date: 20231220
  Receipt Date: 20231220
  Transmission Date: 20240110
  Serious: Yes (Other)
  Sender: FDA-Public Use
  Company Number: US-BRISTOL-MYERS SQUIBB COMPANY-2023-180931

PATIENT
  Age: 66 Year
  Sex: Male
  Weight: 86.18 kg

DRUGS (14)
  1. REVLIMID [Suspect]
     Active Substance: LENALIDOMIDE
     Indication: Plasma cell myeloma
     Dosage: FREQUENCY: 1X21 DAYS
     Route: 048
     Dates: start: 20231010
  2. REVLIMID [Suspect]
     Active Substance: LENALIDOMIDE
     Dosage: TAKE 1 CAPSULE (25 MG) BY MOUTH ONCE DAILY FOR 21 DAYS EVERY 28 DAYS. TAKE BY MOUTH WITH WATER- DO N
     Route: 048
  3. DEXAMETHASONE [Concomitant]
     Active Substance: DEXAMETHASONE
     Indication: Product used for unknown indication
     Dosage: THERAPY END DATE: 31-DEC-2055
     Route: 048
     Dates: start: 20231102
  4. BANOPHEN [Concomitant]
     Active Substance: DIPHENHYDRAMINE HYDROCHLORIDE
     Indication: Product used for unknown indication
     Dosage: THERAPY END DATE: 31-DEC-2055
     Route: 048
     Dates: start: 20231102
  5. LACTULOSE [Concomitant]
     Active Substance: LACTULOSE
     Indication: Product used for unknown indication
     Dosage: 10MG/5ML?THERAPY END DATE: 31-DEC-2055
     Route: 048
     Dates: start: 20231016
  6. AMLODIPINE BESYLATE [Concomitant]
     Active Substance: AMLODIPINE BESYLATE
     Indication: Product used for unknown indication
     Dosage: THERAPY END DATE: 31-DEC-2055
     Route: 048
     Dates: start: 20231009
  7. SODIUM CHLORIDE [Concomitant]
     Active Substance: SODIUM CHLORIDE
     Indication: Product used for unknown indication
     Dosage: THERAPY END DATE: 31-DEC-2055
     Route: 048
     Dates: start: 20231009
  8. TRAMADOL HCL [Concomitant]
     Active Substance: TRAMADOL HYDROCHLORIDE
     Indication: Product used for unknown indication
     Dosage: THERAPY END DATE: 31-DEC-2055
     Route: 048
     Dates: start: 20231009
  9. COLACE [Concomitant]
     Active Substance: DOCUSATE SODIUM
     Indication: Product used for unknown indication
     Dosage: THERAPY END DATE: 31-DEC-2055
     Route: 048
     Dates: start: 20231009
  10. TYLENOL EXTRA STRENGTH [Concomitant]
     Active Substance: ACETAMINOPHEN
     Indication: Product used for unknown indication
     Dosage: THERAPY END DATE: 31-DEC-2055
     Route: 048
     Dates: start: 20231009
  11. BACLOFEN [Concomitant]
     Active Substance: BACLOFEN
     Indication: Product used for unknown indication
     Dosage: THERAPY END DATE: 31-DEC-2055
  12. ACETAMINOPHEN\HYDROCODONE [Concomitant]
     Active Substance: ACETAMINOPHEN\HYDROCODONE
     Indication: Product used for unknown indication
     Dosage: THERAPY END DATE: 31-DEC-2055?10-325
  13. GABAPENTIN [Concomitant]
     Active Substance: GABAPENTIN
     Indication: Product used for unknown indication
     Dosage: THERAPY END DATE: 31-DEC-2055
  14. ROSUVASTATIN [Concomitant]
     Active Substance: ROSUVASTATIN
     Indication: Product used for unknown indication
     Dosage: THERAPY END DATE: 31-DEC-2055

REACTIONS (1)
  - Oedema peripheral [Not Recovered/Not Resolved]

NARRATIVE: CASE EVENT DATE: 20231112
